FAERS Safety Report 6550055-3 (Version None)
Quarter: 2010Q1

REPORT INFORMATION
  Report Type: 
  Country: None (occurrence: None)
  Receive Date: 20100125
  Receipt Date: 20100114
  Transmission Date: 20100710
  Serious: Yes (Other)
  Sender: FDA-Public Use
  Company Number: US-SANOFI-AVENTIS-2010SA002549

PATIENT
  Age: 71 Year
  Sex: Female

DRUGS (13)
  1. MULTAQ [Suspect]
     Indication: ATRIAL FIBRILLATION
     Route: 048
     Dates: start: 20091201
  2. MULTAQ [Suspect]
     Dosage: HALF TABLET TWICE DAILY
     Route: 048
  3. FUROSEMIDE [Concomitant]
     Indication: DIURETIC THERAPY
     Dosage: REDUCED TO HALF TABLET DAILY
     Route: 048
  4. VITAMIN B-12 [Concomitant]
     Indication: VITAMIN SUPPLEMENTATION
  5. VYTORIN [Concomitant]
     Dosage: 10/20 QD
     Route: 048
  6. MAGNESIUM [Concomitant]
     Route: 048
  7. K-DUR [Concomitant]
     Route: 048
  8. NEURONTIN [Concomitant]
     Indication: FIBROMYALGIA
     Route: 048
  9. ASPIRIN [Concomitant]
     Route: 048
  10. HYDROCODONE BITARTRATE AND ACETAMINOPHEN [Concomitant]
     Indication: PAIN
     Route: 048
  11. CALCIUM [Concomitant]
     Route: 048
  12. XANAX [Concomitant]
     Indication: ANXIETY
     Dosage: HALF 0.25MG TABLET
     Route: 048
  13. XANAX [Concomitant]
     Indication: INSOMNIA
     Dosage: HALF 0.25MG TABLET
     Route: 048

REACTIONS (8)
  - ATRIAL FIBRILLATION [None]
  - CHEST DISCOMFORT [None]
  - DIZZINESS [None]
  - DYSPNOEA [None]
  - HEADACHE [None]
  - INCORRECT DOSE ADMINISTERED [None]
  - NAUSEA [None]
  - PALPITATIONS [None]
